FAERS Safety Report 6575217-0 (Version None)
Quarter: 2010Q1

REPORT INFORMATION
  Report Type: 
  Country: None (occurrence: None)
  Receive Date: 20100202
  Receipt Date: 20100126
  Transmission Date: 20100710
  Serious: Yes (Hospitalization, Other)
  Sender: FDA-Public Use
  Company Number: 2008SP011623

PATIENT
  Age: 44 Year
  Sex: Male

DRUGS (2)
  1. RIBAVIRIN [Suspect]
     Indication: HEPATITIS C
     Dosage: PO
     Route: 048
     Dates: start: 20000101
  2. INTRON A [Suspect]
     Indication: HEPATITIS C
     Dosage: TIW
     Dates: start: 20000101

REACTIONS (8)
  - CHILLS [None]
  - CHOLECYSTECTOMY [None]
  - EPISTAXIS [None]
  - LIVER TRANSPLANT [None]
  - PLATELET COUNT DECREASED [None]
  - PYREXIA [None]
  - SPLEEN DISORDER [None]
  - VOMITING [None]
